FAERS Safety Report 18850633 (Version 1)
Quarter: 2021Q1

REPORT INFORMATION
  Report Type: Spontaneous
  Country: AU (occurrence: AU)
  Receive Date: 20210205
  Receipt Date: 20210205
  Transmission Date: 20210420
  Serious: Yes (Death, Other)
  Sender: FDA-Public Use
  Company Number: AU-AMGEN-AUSSP2021016381

PATIENT
  Sex: Female

DRUGS (1)
  1. KYPROLIS [Suspect]
     Active Substance: CARFILZOMIB
     Indication: PLASMA CELL MYELOMA
     Dosage: 70 MILLIGRAM/SQ. METER, QWK
     Route: 065
     Dates: start: 2020, end: 2020

REACTIONS (2)
  - Plasma cell myeloma [Fatal]
  - Pleural effusion [Fatal]

NARRATIVE: CASE EVENT DATE: 2020
